FAERS Safety Report 7275658-2 (Version None)
Quarter: 2011Q1

REPORT INFORMATION
  Report Type: 
  Country: None (occurrence: None)
  Receive Date: 20110204
  Receipt Date: 20110126
  Transmission Date: 20110831
  Serious: Yes (Hospitalization)
  Sender: FDA-Public Use
  Company Number: US-ASTRAZENECA-2011SE04825

PATIENT
  Age: 67 Year
  Sex: Female

DRUGS (14)
  1. CRESTOR [Suspect]
     Route: 048
  2. PLAVIX [Concomitant]
     Route: 048
  3. ZINACEF [Concomitant]
     Route: 042
  4. BENADRYL [Concomitant]
     Route: 065
  5. FLEXERIL [Concomitant]
     Indication: MUSCLE SPASMS
     Dosage: 5 MG TID AS NEEDED
     Route: 048
  6. PERCOCET [Concomitant]
     Indication: PAIN
     Dosage: 1-2 AS NEEDED
     Route: 065
  7. LOVENOX [Concomitant]
     Route: 065
  8. XANAX [Concomitant]
     Route: 048
  9. OXYCODONE HCL [Concomitant]
     Route: 048
  10. AMLODIPINE [Concomitant]
     Route: 048
  11. TRIAMTERENE AND HYDROCHLOROTHIAZIDE [Concomitant]
     Dosage: 37.5/25 MG DAILY
     Route: 065
  12. METOPROLOL TARTRATE [Suspect]
     Route: 048
  13. NIACIN [Concomitant]
     Route: 065
  14. ASPIRIN [Concomitant]
     Route: 048

REACTIONS (10)
  - SYNCOPE [None]
  - ANGIOPATHY [None]
  - CORONARY ARTERY DISEASE [None]
  - ATRIAL FIBRILLATION [None]
  - ACUTE MYOCARDIAL INFARCTION [None]
  - PULMONARY FIBROSIS [None]
  - ATELECTASIS [None]
  - SPINAL OSTEOARTHRITIS [None]
  - MENTAL STATUS CHANGES [None]
  - CHEST PAIN [None]
